FAERS Safety Report 7596758-3 (Version None)
Quarter: 2011Q3

REPORT INFORMATION
  Report Type: 
  Country: None (occurrence: None)
  Receive Date: 20110708
  Receipt Date: 20110705
  Transmission Date: 20111222
  Serious: No
  Sender: FDA-Public Use
  Company Number: US-PFIZER INC-2011029586

PATIENT
  Sex: Male
  Weight: 74.83 kg

DRUGS (3)
  1. ACETYLSALICYLIC ACID [Concomitant]
     Indication: CARDIAC DISORDER
     Dosage: 81 MG, DAILY
  2. NIFEDIPINE [Concomitant]
     Indication: HYPERTENSION
     Dosage: 60 MG, DAILY
  3. VIAGRA [Suspect]
     Indication: ERECTILE DYSFUNCTION
     Dosage: 100 MG, AS NEEDED
     Route: 048
     Dates: start: 20050101

REACTIONS (1)
  - DRUG INEFFECTIVE [None]
